FAERS Safety Report 5769728-5 (Version None)
Quarter: 2008Q2

REPORT INFORMATION
  Report Type: 
  Country: None (occurrence: None)
  Receive Date: 20080612
  Receipt Date: 20080410
  Transmission Date: 20081010
  Serious: No
  Sender: FDA-Public Use
  Company Number: US-ABBOTT-08P-163-0446680-00

PATIENT
  Sex: Female
  Weight: 68.1 kg

DRUGS (15)
  1. HUMIRA [Suspect]
     Indication: CROHN'S DISEASE
     Route: 058
     Dates: start: 20080328, end: 20080411
  2. HUMIRA [Suspect]
     Dates: start: 20080411
  3. CELECOXIB [Suspect]
     Indication: ARTHRALGIA
     Route: 048
     Dates: start: 20080410
  4. CELECOXIB [Suspect]
     Dates: start: 19930101, end: 20080401
  5. MESALAMINE [Concomitant]
     Indication: DRUG USE FOR UNKNOWN INDICATION
  6. MESALAMINE [Concomitant]
  7. POTASSIUM CHLORIDE [Concomitant]
     Indication: DRUG USE FOR UNKNOWN INDICATION
  8. LEVOTHYROXINE SODIUM [Concomitant]
     Indication: DRUG USE FOR UNKNOWN INDICATION
  9. HEPARIN-FRACTION, SODIUM SALT [Concomitant]
     Indication: DRUG USE FOR UNKNOWN INDICATION
  10. CODEINE SUL TAB [Concomitant]
     Indication: DRUG USE FOR UNKNOWN INDICATION
  11. PAREGORIC [Concomitant]
     Indication: DRUG USE FOR UNKNOWN INDICATION
  12. FOLIC ACID [Concomitant]
     Indication: DRUG USE FOR UNKNOWN INDICATION
  13. FUROSEMIDE [Concomitant]
     Indication: DRUG USE FOR UNKNOWN INDICATION
  14. LANSOPRAZOLE [Concomitant]
     Indication: DRUG USE FOR UNKNOWN INDICATION
  15. ERGOCALCIFEROL [Concomitant]
     Indication: DRUG USE FOR UNKNOWN INDICATION

REACTIONS (2)
  - ARTHRALGIA [None]
  - BACK PAIN [None]
